FAERS Safety Report 9289060 (Version 1)
Quarter: 2013Q2

REPORT INFORMATION
  Report Type: Spontaneous
  Country: US (occurrence: US)
  Receive Date: 20130514
  Receipt Date: 20130514
  Transmission Date: 20140414
  Serious: No
  Sender: FDA-Public Use
  Company Number: US-PFIZER INC-2013146771

PATIENT
  Age: 82 Year
  Sex: Female

DRUGS (2)
  1. TIKOSYN [Suspect]
     Dosage: 250 UG, 2X/DAY
     Dates: start: 20130323
  2. SIMVASTATIN [Concomitant]
     Indication: BLOOD CHOLESTEROL ABNORMAL
     Dosage: 20 MG, DAILY

REACTIONS (1)
  - Blood glucose increased [Unknown]
